FAERS Safety Report 12329949 (Version 6)
Quarter: 2017Q3

REPORT INFORMATION
  Report Type: Spontaneous
  Country: KR (occurrence: KR)
  Receive Date: 20160504
  Receipt Date: 20170822
  Transmission Date: 20171127
  Serious: Yes (Death, Hospitalization, Other)
  Sender: FDA-Public Use
  Company Number: KR-009507513-1605KOR000824

PATIENT
  Age: 71 Year
  Sex: Male
  Weight: 45.1 kg

DRUGS (14)
  1. EMEND (FOSAPREPITANT DIMEGLUMINE) [Suspect]
     Active Substance: FOSAPREPITANT DIMEGLUMINE
     Indication: PROPHYLAXIS OF NAUSEA AND VOMITING
     Dosage: 150 MG, ONCE, CYCLE 1
     Route: 042
     Dates: start: 20160202, end: 20160202
  2. VINCRISTINE SULFATE. [Concomitant]
     Active Substance: VINCRISTINE SULFATE
     Indication: CHEMOTHERAPY
  3. DONG A GASTER [Concomitant]
     Indication: PROPHYLAXIS
     Dosage: 20 MG, BID
     Route: 042
     Dates: start: 20160129, end: 20160203
  4. PANTOLINE INJECTION [Concomitant]
     Indication: PROPHYLAXIS
     Dosage: 40 MG, ONCE
     Route: 042
     Dates: start: 20160202, end: 20160202
  5. SOLONDO [Concomitant]
     Active Substance: PREDNISOLONE
     Indication: PROPHYLAXIS OF NAUSEA AND VOMITING
     Dosage: 20 MG, BID
     Route: 048
     Dates: start: 20160202, end: 20160206
  6. SEPTRIN [Concomitant]
     Active Substance: SULFAMETHOXAZOLE\TRIMETHOPRIM
     Indication: INFECTION PROPHYLAXIS
     Dosage: 1 TABLET, QD
     Route: 048
     Dates: start: 20160129
  7. URSA TABLETS [Concomitant]
     Indication: PROPHYLAXIS
  8. URSA TABLETS [Concomitant]
     Indication: HEPATIC FUNCTION ABNORMAL
     Dosage: 200 MG, TID
     Route: 048
     Dates: start: 20160201
  9. ENDOXAN [Concomitant]
     Active Substance: CYCLOPHOSPHAMIDE
     Indication: LYMPHOMA
     Dosage: 530 MG, ONCE, CYCLE 1
     Route: 042
     Dates: start: 20160202, end: 20160202
  10. KYTRIL [Concomitant]
     Active Substance: GRANISETRON HYDROCHLORIDE
     Indication: PROPHYLAXIS OF NAUSEA AND VOMITING
     Dosage: 1 MG, ONCE
     Route: 042
     Dates: start: 20160202, end: 20160202
  11. SOLONDO [Concomitant]
     Active Substance: PREDNISOLONE
     Dosage: 15 MG, QD
     Route: 048
     Dates: start: 20160202, end: 20160206
  12. NEULAPEG [Concomitant]
     Indication: PROPHYLAXIS
     Dosage: 6 MG, ONCE
     Route: 058
     Dates: start: 20160204, end: 20160204
  13. ADRIAMYCIN [Concomitant]
     Active Substance: DOXORUBICIN HYDROCHLORIDE
     Indication: LYMPHOMA
     Dosage: 35 MG, ONCE, CYCLE 1
     Route: 042
     Dates: start: 20160202, end: 20160202
  14. VINCRISTINE SULFATE. [Concomitant]
     Active Substance: VINCRISTINE SULFATE
     Indication: LYMPHOMA
     Dosage: STRENGTH: 1MG/ML 2ML; 1.4 MG, ONCE, CYCLE 1
     Route: 042
     Dates: start: 20160202, end: 20160202

REACTIONS (4)
  - Febrile neutropenia [Not Recovered/Not Resolved]
  - Influenza [Not Recovered/Not Resolved]
  - Fluid imbalance [Recovered/Resolved]
  - Respiratory failure [Fatal]

NARRATIVE: CASE EVENT DATE: 20160204
